FAERS Safety Report 4553704-4 (Version None)
Quarter: 2005Q1

REPORT INFORMATION
  Report Type: 
  Country: None (occurrence: None)
  Receive Date: 20050114
  Receipt Date: 20050114
  Transmission Date: 20050727
  Serious: Yes (Life-Threatening, Other)
  Sender: FDA-Public Use
  Company Number: None

PATIENT
  Age: 24 Year
  Sex: Female
  Weight: 52.1637 kg

DRUGS (1)
  1. SULFAMETHOXAZOLE/  TMP DE TABTEV       TEVA [Suspect]
     Indication: CYSTITIS
     Dosage: 1 TABLET   TWICE DAILY   ORAL
     Route: 048
     Dates: start: 20050108, end: 20050111

REACTIONS (10)
  - ANORECTAL DISORDER [None]
  - DECREASED APPETITE [None]
  - DEPRESSION [None]
  - EMOTIONAL DISTRESS [None]
  - HEADACHE [None]
  - INTESTINAL MASS [None]
  - PROCTALGIA [None]
  - RASH [None]
  - SKIN DISCOLOURATION [None]
  - STEVENS-JOHNSON SYNDROME [None]
